FAERS Safety Report 5018201-0 (Version None)
Quarter: 2006Q2

REPORT INFORMATION
  Report Type: 
  Country: None (occurrence: None)
  Receive Date: 20060530
  Receipt Date: 20060518
  Transmission Date: 20061013
  Serious: Yes (Other)
  Sender: FDA-Public Use
  Company Number: 2006066149

PATIENT
  Age: 22 Year
  Sex: Female

DRUGS (1)
  1. PHENYTOIN INJECTION [Suspect]
     Indication: ILL-DEFINED DISORDER
     Dosage: INTRAVENOUS
     Route: 042
     Dates: start: 19870619, end: 19870703

REACTIONS (1)
  - HEPATIC FUNCTION ABNORMAL [None]
